FAERS Safety Report 16821260 (Version 3)
Quarter: 2020Q1

REPORT INFORMATION
  Report Type: Spontaneous
  Country: FR (occurrence: FR)
  Receive Date: 20190918
  Receipt Date: 20200110
  Transmission Date: 20200409
  Serious: Yes (Life-Threatening)
  Sender: FDA-Public Use
  Company Number: FR-TEVA-2019-FR-1108242

PATIENT
  Age: 46 Year
  Sex: Male

DRUGS (1)
  1. IBUPROFEN. [Suspect]
     Active Substance: IBUPROFEN
     Indication: HEADACHE
     Dosage: 1200 MG/ DAY
     Route: 048
     Dates: start: 20190617, end: 20190619

REACTIONS (4)
  - Infection masked [Recovered/Resolved with Sequelae]
  - Cavernous sinus thrombosis [Recovered/Resolved with Sequelae]
  - Empyema [Recovered/Resolved with Sequelae]
  - Streptococcal infection [Recovered/Resolved with Sequelae]

NARRATIVE: CASE EVENT DATE: 201906
